FAERS Safety Report 17425618 (Version 3)
Quarter: 2020Q1

REPORT INFORMATION
  Report Type: Report from Study
  Country: None (occurrence: CH)
  Receive Date: 20200218
  Receipt Date: 20200225
  Transmission Date: 20200409
  Serious: Yes (Hospitalization)
  Sender: FDA-Public Use
  Company Number: CH-ABBVIE-20K-151-3276769-00

PATIENT
  Age: 66 Year
  Sex: Female

DRUGS (6)
  1. DUODOPA [Suspect]
     Active Substance: CARBIDOPA\LEVODOPA
     Dosage: MD: 8.0 ML, CRD:3.2 ML/H, CONTINUOUS RATE NIGHT:0 ML/H, EXTRA DOSE: 1.3 ML 16H THERAPY
     Route: 050
     Dates: start: 20181017, end: 20190712
  2. DUODOPA [Suspect]
     Active Substance: CARBIDOPA\LEVODOPA
     Dosage: MD: 5.0 ML, CRD:4 ML/H, CRN 2.5 ML/H,ED: 1.5 ML.24H THERAPY
     Route: 050
     Dates: start: 20200214
  3. COMTAN [Suspect]
     Active Substance: ENTACAPONE
     Indication: PRODUCT USED FOR UNKNOWN INDICATION
     Dosage: AT NIGHT
     Route: 065
     Dates: end: 20200206
  4. DUODOPA [Suspect]
     Active Substance: CARBIDOPA\LEVODOPA
     Dosage: MD: 7.0 ML, CRD:3.7 ML/H, CRN:3.7 ML/H,ED: 1.5 ML.24H THERAPY
     Route: 050
     Dates: start: 20200213, end: 20200214
  5. DUODOPA [Suspect]
     Active Substance: CARBIDOPA\LEVODOPA
     Indication: PARKINSON^S DISEASE
     Route: 050
     Dates: start: 20180920, end: 20181017
  6. DUODOPA [Suspect]
     Active Substance: CARBIDOPA\LEVODOPA
     Dosage: MD: 7.0 ML, CRD:3.6 ML/H, CRN:0 ML/H, ED: 1.5 ML.16H THERAPY
     Route: 050
     Dates: start: 20190712, end: 20200213

REACTIONS (6)
  - C-reactive protein increased [Recovered/Resolved]
  - Urinary retention [Unknown]
  - Urinary tract infection [Recovered/Resolved]
  - Akinesia [Recovering/Resolving]
  - Cystitis [Recovered/Resolved]
  - Tremor [Recovered/Resolved]

NARRATIVE: CASE EVENT DATE: 20200210
